FAERS Safety Report 6070544-8 (Version None)
Quarter: 2009Q1

REPORT INFORMATION
  Report Type: 
  Country: None (occurrence: None)
  Receive Date: 20090209
  Receipt Date: 20090119
  Transmission Date: 20090719
  Serious: Yes (Hospitalization)
  Sender: FDA-Public Use
  Company Number: FR-ROCHE-612135

PATIENT
  Sex: Female

DRUGS (2)
  1. BONIVA [Suspect]
     Indication: OSTEOPOROSIS
     Dosage: FORM: INJECTABLE SOLUTION
     Route: 042
     Dates: start: 20080227, end: 20080528
  2. ZOMETA [Suspect]
     Indication: OSTEOPOROSIS
     Route: 042
     Dates: start: 20081020, end: 20081020

REACTIONS (2)
  - ARTHRALGIA [None]
  - TENOSYNOVITIS [None]
